FAERS Safety Report 21017684 (Version 1)
Quarter: 2022Q2

REPORT INFORMATION
  Report Type: Spontaneous
  Country: US (occurrence: None)
  Receive Date: 20220627
  Receipt Date: 20220627
  Transmission Date: 20220721
  Serious: No
  Sender: FDA-Public Use
  Company Number: None

PATIENT

DRUGS (1)
  1. DIGOXIN [Suspect]
     Active Substance: DIGOXIN

REACTIONS (3)
  - Product substitution issue [None]
  - Heart rate increased [None]
  - Heart rate irregular [None]
